FAERS Safety Report 24324015 (Version 1)
Quarter: 2024Q3

REPORT INFORMATION
  Report Type: Spontaneous
  Country: JP (occurrence: None)
  Receive Date: 20240916
  Receipt Date: 20240916
  Transmission Date: 20241017
  Serious: Yes (Other)
  Sender: ASTRAZENECA
  Company Number: 2024A206827

PATIENT
  Age: 57 Year
  Sex: Female

DRUGS (2)
  1. OSIMERTINIB [Suspect]
     Active Substance: OSIMERTINIB
     Indication: Lung adenocarcinoma stage III
     Route: 048
  2. GEFITINIB [Suspect]
     Active Substance: GEFITINIB
     Indication: Lung adenocarcinoma stage III
     Route: 048

REACTIONS (2)
  - Interstitial lung disease [Recovered/Resolved]
  - Malignant neoplasm progression [Unknown]
